FAERS Safety Report 4763502-4 (Version None)
Quarter: 2005Q3

REPORT INFORMATION
  Report Type: 
  Country: None (occurrence: None)
  Receive Date: 20050906
  Receipt Date: 20050609
  Transmission Date: 20060218
  Serious: No
  Sender: FDA-Public Use
  Company Number: 2005-0008409

PATIENT
  Age: 47 Year
  Sex: Male

DRUGS (4)
  1. VIREAD [Suspect]
     Indication: HIV INFECTION
  2. EMTRIVA [Suspect]
     Indication: HIV INFECTION
  3. TRUVADA [Suspect]
     Indication: HIV INFECTION
     Dates: start: 20040601
  4. SUSTIVA [Concomitant]

REACTIONS (2)
  - CONDITION AGGRAVATED [None]
  - LIPODYSTROPHY ACQUIRED [None]
